FAERS Safety Report 22623860 (Version 1)
Quarter: 2023Q2

REPORT INFORMATION
  Report Type: Spontaneous
  Country: HU (occurrence: None)
  Receive Date: 20230621
  Receipt Date: 20230621
  Transmission Date: 20230722
  Serious: Yes (Other)
  Sender: FDA-Public Use
  Company Number: 2023A136385

PATIENT
  Age: 55 Year
  Sex: Female

DRUGS (2)
  1. QUETIAPINE FUMARATE [Suspect]
     Active Substance: QUETIAPINE FUMARATE
     Route: 048
     Dates: start: 20230207, end: 20230501
  2. RISPERIDONE [Concomitant]
     Active Substance: RISPERIDONE
     Dosage: 2.0DF UNKNOWN
     Route: 048
     Dates: start: 20230207, end: 20230501

REACTIONS (4)
  - Renal disorder [Recovered/Resolved]
  - Myalgia [Recovered/Resolved]
  - Electrocardiogram QT prolonged [Recovered/Resolved]
  - Constipation [Recovered/Resolved]

NARRATIVE: CASE EVENT DATE: 20230301
